FAERS Safety Report 18344333 (Version 1)
Quarter: 2020Q4

REPORT INFORMATION
  Report Type: Spontaneous
  Country: US (occurrence: US)
  Receive Date: 20201002
  Receipt Date: 20201002
  Transmission Date: 20210114
  Serious: Yes (Hospitalization)
  Sender: FDA-Public Use
  Company Number: None

PATIENT
  Age: 46 Year
  Sex: Male
  Weight: 74.9 kg

DRUGS (3)
  1. MERCAPTOPURINE. [Suspect]
     Active Substance: MERCAPTOPURINE
     Dates: end: 20200530
  2. METHOTREXATE. [Suspect]
     Active Substance: METHOTREXATE
     Dates: end: 20200525
  3. VINCRISTINE SULFATE. [Suspect]
     Active Substance: VINCRISTINE SULFATE
     Dates: end: 20200518

REACTIONS (5)
  - COVID-19 pneumonia [None]
  - Acute respiratory distress syndrome [None]
  - Back injury [None]
  - Depression [None]
  - Back pain [None]

NARRATIVE: CASE EVENT DATE: 20200526
